FAERS Safety Report 6986418-1 (Version None)
Quarter: 2010Q3

REPORT INFORMATION
  Report Type: 
  Country: None (occurrence: None)
  Receive Date: 20100915
  Receipt Date: 20090629
  Transmission Date: 20110219
  Serious: No
  Sender: FDA-Public Use
  Company Number: US-WYE-H09952409

PATIENT
  Sex: Female
  Weight: 83.99 kg

DRUGS (4)
  1. PRISTIQ [Suspect]
     Indication: DEPRESSION
     Route: 048
     Dates: start: 20090101, end: 20090601
  2. PRISTIQ [Suspect]
     Route: 048
     Dates: start: 20090622
  3. XANAX [Concomitant]
  4. VIVELLE [Concomitant]

REACTIONS (6)
  - ABNORMAL DREAMS [None]
  - CRYING [None]
  - DRUG WITHDRAWAL SYNDROME [None]
  - INSOMNIA [None]
  - PARAESTHESIA [None]
  - SOMNOLENCE [None]
